FAERS Safety Report 7564968-7 (Version None)
Quarter: 2011Q2

REPORT INFORMATION
  Report Type: 
  Country: None (occurrence: None)
  Receive Date: 20110622
  Receipt Date: 20110609
  Transmission Date: 20111010
  Serious: Yes (Other)
  Sender: FDA-Public Use
  Company Number: US-MYLANLABS-2011S1004551

PATIENT
  Age: 37 Year
  Sex: Male
  Weight: 98.88 kg

DRUGS (9)
  1. CLOZAPINE [Suspect]
     Indication: SCHIZOPHRENIA
     Route: 048
     Dates: start: 20110211, end: 20110421
  2. CLOZAPINE [Suspect]
     Route: 048
     Dates: start: 20110211, end: 20110421
  3. CLOZAPINE [Suspect]
     Route: 048
     Dates: start: 20110425, end: 20110501
  4. CLOZAPINE [Suspect]
     Route: 048
     Dates: start: 20110211, end: 20110421
  5. CLOZAPINE [Suspect]
     Route: 048
     Dates: start: 20110425, end: 20110501
  6. CLOZAPINE [Suspect]
     Route: 048
     Dates: start: 20110425, end: 20110501
  7. CLOZAPINE [Suspect]
     Indication: PSYCHOTIC DISORDER
     Route: 048
     Dates: start: 20110211, end: 20110421
  8. CLOZAPINE [Suspect]
     Route: 048
     Dates: start: 20110425, end: 20110501
  9. HALDOL [Concomitant]

REACTIONS (1)
  - GRANULOCYTOPENIA [None]
